FAERS Safety Report 10177892 (Version 1)
Quarter: 2014Q2

REPORT INFORMATION
  Report Type: Spontaneous
  Country: JP (occurrence: JP)
  Receive Date: 20140516
  Receipt Date: 20140516
  Transmission Date: 20141212
  Serious: Yes (Other)
  Sender: FDA-Public Use
  Company Number: JP-ASTRAZENECA-2014SE33108

PATIENT
  Age: 32561 Day
  Sex: Female

DRUGS (12)
  1. MEROPEN [Suspect]
     Indication: PNEUMONIA
     Dosage: 1 G (0.5 G X 2) X 2
     Route: 042
     Dates: start: 20140107, end: 20140113
  2. PRIMPERAN [Concomitant]
     Route: 030
     Dates: start: 20140110, end: 20140110
  3. BFLUID [Concomitant]
     Dates: start: 20140110, end: 20140113
  4. SOLITA-T NO.3 [Concomitant]
     Dates: start: 20140111, end: 20140111
  5. ALBUMIN [Concomitant]
     Dates: start: 20140104, end: 20140116
  6. CEFTRIAXONE SODIUM HYDRATE [Concomitant]
     Dates: start: 20140114, end: 20140116
  7. CIPROXAN [Concomitant]
     Dates: start: 20140117, end: 20140117
  8. CIPROXAN [Concomitant]
     Dates: start: 20140118, end: 20140124
  9. MIRCERA [Concomitant]
     Route: 058
     Dates: start: 20140122, end: 20140122
  10. TIENAM [Concomitant]
  11. PROGRAF [Concomitant]
     Indication: RHEUMATIC DISORDER
     Dates: end: 20140110
  12. RHEUMATREX [Concomitant]
     Indication: RHEUMATIC DISORDER
     Dates: end: 20140111

REACTIONS (1)
  - Diabetes insipidus [Recovered/Resolved]
